FAERS Safety Report 25019455 (Version 1)
Quarter: 2025Q1

REPORT INFORMATION
  Report Type: Spontaneous
  Country: US (occurrence: US)
  Receive Date: 20250227
  Receipt Date: 20250227
  Transmission Date: 20250408
  Serious: Yes (Death, Other)
  Sender: DR REDDYS
  Company Number: US-DRL-USA-USA/2025/02/002907

PATIENT
  Age: 26 Year
  Sex: Male

DRUGS (9)
  1. DOXORUBICIN [Suspect]
     Active Substance: DOXORUBICIN
     Indication: Testis cancer
     Dates: start: 2011
  2. GEMCITABINE [Suspect]
     Active Substance: GEMCITABINE
     Indication: Testis cancer
     Dates: start: 2011
  3. DOCETAXEL [Suspect]
     Active Substance: DOCETAXEL
     Indication: Testis cancer
     Dates: start: 2011
  4. MELPHALAN [Suspect]
     Active Substance: MELPHALAN
     Indication: Testis cancer
     Dates: start: 2011
  5. CISPLATIN [Concomitant]
     Active Substance: CISPLATIN
     Indication: Testis cancer
     Dates: start: 2011
  6. PACLITAXEL [Concomitant]
     Active Substance: PACLITAXEL
     Indication: Testis cancer
     Dates: start: 2011
  7. CARBOPLATIN [Concomitant]
     Active Substance: CARBOPLATIN
     Indication: Testis cancer
     Dates: start: 2011
  8. IFOSFAMIDE [Concomitant]
     Active Substance: IFOSFAMIDE
     Indication: Testis cancer
     Dates: start: 2011
  9. ETOPOSIDE [Concomitant]
     Active Substance: ETOPOSIDE
     Indication: Testis cancer
     Dates: start: 2011

REACTIONS (1)
  - Drug ineffective for unapproved indication [Fatal]
